FAERS Safety Report 18478760 (Version 2)
Quarter: 2020Q4

REPORT INFORMATION
  Report Type: Report from Study
  Country: None (occurrence: BE)
  Receive Date: 20201109
  Receipt Date: 20201118
  Transmission Date: 20210114
  Serious: Yes (Hospitalization, Other)
  Sender: FDA-Public Use
  Company Number: BE-ABBVIE-20K-013-3639697-00

PATIENT
  Age: 79 Year
  Sex: Male
  Weight: 72 kg

DRUGS (3)
  1. DUODOPA [Suspect]
     Active Substance: CARBIDOPA\LEVODOPA
     Indication: PARKINSON^S DISEASE
     Dosage: UNKNOWN DOSAGES
     Route: 050
     Dates: start: 20161202, end: 20200925
  2. DUODOPA [Suspect]
     Active Substance: CARBIDOPA\LEVODOPA
     Dosage: MD= 4.5 ML, CD=3.6 ML/HR DURING 16HRS,,ED= 2.7 ML, ND= 3.6 ML/HR DURING 8HRS
     Route: 050
     Dates: start: 20200925, end: 20201009
  3. DUODOPA [Suspect]
     Active Substance: CARBIDOPA\LEVODOPA
     Dosage: MD= 4.5 ML, CD= 3.6 ML/HR DURING 16HRS, ED= 2.5 ML, ND=3.6 ML/HR DURING 8HRS
     Route: 050
     Dates: start: 20201009

REACTIONS (1)
  - COVID-19 [Recovered/Resolved]

NARRATIVE: CASE EVENT DATE: 2020
